FAERS Safety Report 23985249 (Version 1)
Quarter: 2024Q2

REPORT INFORMATION
  Report Type: Spontaneous
  Country: US (occurrence: US)
  Receive Date: 20240618
  Receipt Date: 20240618
  Transmission Date: 20240716
  Serious: Yes (Other)
  Sender: FDA-Public Use
  Company Number: US-LUPIN PHARMACEUTICALS INC.-2024-05071

PATIENT

DRUGS (1)
  1. LEVOTHYROXINE SODIUM [Suspect]
     Active Substance: LEVOTHYROXINE SODIUM
     Indication: Product used for unknown indication
     Dosage: UNK
     Route: 065

REACTIONS (8)
  - Throat tightness [Unknown]
  - Oropharyngeal pain [Unknown]
  - Constipation [Unknown]
  - Heart rate increased [Unknown]
  - Alopecia [Unknown]
  - Feeling abnormal [Unknown]
  - Fatigue [Unknown]
  - Product substitution issue [Unknown]
